FAERS Safety Report 12485939 (Version 1)
Quarter: 2016Q2

REPORT INFORMATION
  Report Type: Spontaneous
  Country: TH (occurrence: TH)
  Receive Date: 20160621
  Receipt Date: 20160621
  Transmission Date: 20160815
  Serious: Yes (Hospitalization, Other)
  Sender: FDA-Public Use
  Company Number: ALCN2016TH004264

PATIENT
  Age: 74 Year
  Sex: Female

DRUGS (3)
  1. BSS [Suspect]
     Active Substance: CALCIUM CHLORIDE\MAGNESIUM CHLORIDE\POTASSIUM CHLORIDE\SODIUM ACETATE\SODIUM CHLORIDE\SODIUM CITRATE
     Indication: CATARACT OPERATION
     Dosage: UNK UNK, ONCE/SINGLE
     Route: 065
     Dates: start: 20160606, end: 20160606
  2. BETADINE [Concomitant]
     Active Substance: POVIDONE-IODINE
     Indication: PREOPERATIVE CARE
     Dosage: UNK UNK, ONCE/SINGLE
     Route: 047
     Dates: start: 20160606, end: 20160606
  3. CRAVIT [Concomitant]
     Active Substance: LEVOFLOXACIN
     Indication: PREOPERATIVE CARE
     Route: 047

REACTIONS (4)
  - Endophthalmitis [Recovered/Resolved]
  - Eye pain [Recovered/Resolved]
  - Off label use [Recovered/Resolved]
  - Visual acuity reduced [Recovered/Resolved]

NARRATIVE: CASE EVENT DATE: 20160608
